FAERS Safety Report 24570006 (Version 4)
Quarter: 2025Q1

REPORT INFORMATION
  Report Type: Spontaneous
  Country: US (occurrence: US)
  Receive Date: 20241031
  Receipt Date: 20250307
  Transmission Date: 20250408
  Serious: No
  Sender: MERCK SHARP & DOHME LLC
  Company Number: US-PFIZER INC-202400254130

PATIENT
  Age: 72 Year
  Sex: Female

DRUGS (4)
  1. TUCATINIB [Suspect]
     Active Substance: TUCATINIB
     Indication: Breast cancer female
     Dosage: DOSE DESCRIPTION : 2 DOSAGE FORM, 2X/DAY?DAILY DOSE : 150 MILLIGRAM?CONCENTRATION: 150 MILLIGRAM
     Route: 048
     Dates: end: 202410
  2. TUCATINIB [Suspect]
     Active Substance: TUCATINIB
     Indication: Breast cancer female
     Dosage: TUKYSA 150MG, TWO TABLETS TWICE A DAY
  3. CAPECITABINE [Concomitant]
     Active Substance: CAPECITABINE
     Dosage: DOSE DESCRIPTION : 3 DF, 2X/DAY
  4. CAPECITABINE [Concomitant]
     Active Substance: CAPECITABINE
     Dosage: 2 DF, 2X/DAY

REACTIONS (2)
  - Asthenia [Unknown]
  - Off label use [Unknown]
